FAERS Safety Report 9217557 (Version 2)
Quarter: 2013Q2

REPORT INFORMATION
  Report Type: Report from Study
  Country: IT (occurrence: IT)
  Receive Date: 20130408
  Receipt Date: 20130523
  Transmission Date: 20140414
  Serious: Yes (Death)
  Sender: FDA-Public Use
  Company Number: IT-ROCHE-1210952

PATIENT
  Age: 51 Year
  Sex: Male

DRUGS (2)
  1. ALTEPLASE [Suspect]
     Indication: ISCHAEMIC STROKE
     Dosage: 10% AS BOLUS, 90% AS A CONSTANT INFUSION OVER ONE HOUR THERAPY DURATION 1 HOUR
     Route: 042
  2. ALTEPLASE [Suspect]
     Indication: OFF LABEL USE

REACTIONS (1)
  - Acute respiratory failure [Fatal]
